FAERS Safety Report 4367004-9 (Version None)
Quarter: 2004Q2

REPORT INFORMATION
  Report Type: 
  Country: None (occurrence: None)
  Receive Date: 20040527
  Receipt Date: 20040527
  Transmission Date: 20050107
  Serious: Yes (Hospitalization)
  Sender: FDA-Public Use
  Company Number: None

PATIENT
  Age: 50 Year
  Sex: Male
  Weight: 83.9154 kg

DRUGS (2)
  1. AMBIEN [Suspect]
     Dosage: 10 MG X ONCE
     Dates: start: 20040512
  2. AMBIEN [Suspect]
     Dosage: 10 MG X ONCE
     Dates: start: 20040517

REACTIONS (1)
  - SYNCOPE [None]
